FAERS Safety Report 14066198 (Version 2)
Quarter: 2017Q4

REPORT INFORMATION
  Report Type: Report from Study
  Country: PA (occurrence: PA)
  Receive Date: 20171010
  Receipt Date: 20171217
  Transmission Date: 20180321
  Serious: Yes (Other)
  Sender: FDA-Public Use
  Company Number: PHHY2017PA147639

PATIENT
  Age: 66 Year
  Sex: Female

DRUGS (2)
  1. AFINITOR [Suspect]
     Active Substance: EVEROLIMUS
     Indication: PRODUCT USED FOR UNKNOWN INDICATION
     Dosage: 5 MG, UNK
     Route: 065
  2. AFINITOR [Suspect]
     Active Substance: EVEROLIMUS
     Dosage: 10 MG, UNK
     Route: 065
     Dates: start: 201711

REACTIONS (9)
  - Arthralgia [Unknown]
  - Asthenia [Unknown]
  - Somnolence [Unknown]
  - Disease progression [Unknown]
  - Dizziness [Unknown]
  - Pyrexia [Unknown]
  - Breast inflammation [Recovered/Resolved]
  - Erythema [Recovered/Resolved]
  - Therapeutic response decreased [Unknown]
